FAERS Safety Report 24915843 (Version 1)
Quarter: 2025Q1

REPORT INFORMATION
  Report Type: Spontaneous
  Country: US (occurrence: None)
  Receive Date: 20250203
  Receipt Date: 20250203
  Transmission Date: 20250408
  Serious: No
  Sender: MARNEL PHARMACEUTICALS LLC
  Company Number: US-Marnel Pharmaceuticals LLC-MAR202412-000130

PATIENT
  Age: 64 Year
  Sex: Female
  Weight: 83.91 kg

DRUGS (5)
  1. CROTAN [Suspect]
     Active Substance: CROTAMITON
     Indication: Acarodermatitis
  2. XANAX [Concomitant]
     Active Substance: ALPRAZOLAM
     Indication: Anxiety
     Route: 048
  3. AMBIEN [Concomitant]
     Active Substance: ZOLPIDEM TARTRATE
     Indication: Insomnia
     Route: 048
  4. LEVOTHYROXINE [Concomitant]
     Active Substance: LEVOTHYROXINE
     Indication: Thyroid disorder
     Route: 048
     Dates: start: 1999
  5. GABAPENTIN [Concomitant]
     Active Substance: GABAPENTIN
     Indication: Pruritus
     Route: 048

REACTIONS (4)
  - Drug ineffective [Unknown]
  - Product container seal issue [Unknown]
  - Product odour abnormal [Unknown]
  - Product quality issue [Unknown]
